FAERS Safety Report 24165032 (Version 1)
Quarter: 2024Q3

REPORT INFORMATION
  Report Type: Spontaneous
  Country: CN (occurrence: CN)
  Receive Date: 20240802
  Receipt Date: 20240802
  Transmission Date: 20241017
  Serious: Yes (Hospitalization)
  Sender: Haleon PLC
  Company Number: CN-HALEON-2189766

PATIENT
  Age: 73 Year
  Sex: Male
  Weight: 65 kg

DRUGS (2)
  1. DICLOFENAC SODIUM [Suspect]
     Active Substance: DICLOFENAC\DICLOFENAC SODIUM
     Indication: Headache
     Dosage: TIME INTERVAL: AS NECESSARY
     Route: 048
     Dates: start: 20240701, end: 20240715
  2. DICLOFENAC SODIUM [Suspect]
     Active Substance: DICLOFENAC\DICLOFENAC SODIUM
     Indication: Analgesic therapy

REACTIONS (9)
  - Duodenal ulcer [Recovering/Resolving]
  - Abdominal distension [Recovered/Resolved]
  - Abdominal pain upper [Recovered/Resolved]
  - Gastric ulcer [Recovering/Resolving]
  - Fatigue [Recovering/Resolving]
  - Decreased appetite [Recovering/Resolving]
  - Chronic gastritis [Recovering/Resolving]
  - Gastrointestinal injury [Recovering/Resolving]
  - Haematochezia [Recovered/Resolved]

NARRATIVE: CASE EVENT DATE: 20240712
